FAERS Safety Report 5313413-0 (Version None)
Quarter: 2007Q2

REPORT INFORMATION
  Report Type: 
  Country: None (occurrence: None)
  Receive Date: 20070501
  Receipt Date: 20070424
  Transmission Date: 20071010
  Serious: Yes (Hospitalization)
  Sender: FDA-Public Use
  Company Number: DE-BAYER-200711899GDS

PATIENT
  Age: 70 Year
  Sex: Male

DRUGS (5)
  1. ACTIMAX [Suspect]
     Indication: SINOBRONCHITIS
     Route: 048
     Dates: start: 20070319, end: 20070321
  2. ROXITHROMYCIN [Concomitant]
     Indication: SINOBRONCHITIS
     Route: 065
     Dates: end: 20070301
  3. METOPROLOL SUCCINATE [Concomitant]
     Indication: DRUG USE FOR UNKNOWN INDICATION
     Route: 065
  4. LISINOPRIL [Concomitant]
     Indication: DRUG USE FOR UNKNOWN INDICATION
     Route: 065
  5. ASPIRIN [Concomitant]
     Indication: DRUG USE FOR UNKNOWN INDICATION
     Route: 065

REACTIONS (3)
  - CARDIAC FAILURE [None]
  - PULMONARY OEDEMA [None]
  - VASCULAR OCCLUSION [None]
